FAERS Safety Report 8060361-1 (Version None)
Quarter: 2012Q1

REPORT INFORMATION
  Report Type: 
  Country: None (occurrence: None)
  Receive Date: 20120119
  Receipt Date: 20120119
  Transmission Date: 20120608
  Serious: Yes (Hospitalization)
  Sender: FDA-Public Use
  Company Number: None

PATIENT
  Age: 63 Year
  Sex: Female
  Weight: 87.1 kg

DRUGS (9)
  1. M.V.I. [Concomitant]
  2. VIT C [Concomitant]
  3. OMEPRAZOLE [Concomitant]
  4. ASPIRIN [Concomitant]
  5. PREMARIN [Suspect]
     Indication: HORMONE THERAPY
     Dosage: 0.625MG BID VAGINAL CHRONIC
     Route: 067
  6. CALCIUM [Concomitant]
  7. OYSTER BI FLEX [Concomitant]
  8. ACIDOPHILUS [Concomitant]
  9. BETAMETHASONE [Concomitant]

REACTIONS (4)
  - HYPERCOAGULATION [None]
  - PULMONARY EMBOLISM [None]
  - DEEP VEIN THROMBOSIS [None]
  - PULMONARY HYPERTENSION [None]
